FAERS Safety Report 18572924 (Version 2)
Quarter: 2021Q1

REPORT INFORMATION
  Report Type: Spontaneous
  Country: DE (occurrence: DE)
  Receive Date: 20201203
  Receipt Date: 20210323
  Transmission Date: 20210419
  Serious: Yes (Death)
  Sender: FDA-Public Use
  Company Number: DE-ROCHE-2725490

PATIENT
  Age: 58 Year
  Sex: Female
  Weight: 81 kg

DRUGS (5)
  1. DEXAMETHASONE. [Concomitant]
     Active Substance: DEXAMETHASONE
     Dosage: AND 30 MINUTES BEFORE DEATH (ORAL)
     Route: 042
     Dates: start: 202002, end: 202008
  2. CLEMASTINE [Concomitant]
     Active Substance: CLEMASTINE
     Dosage: AND 30 MINUTES BEFORE DEATH (ORAL)
     Route: 042
     Dates: start: 202002, end: 202008
  3. LEVETIRACETAM. [Concomitant]
     Active Substance: LEVETIRACETAM
     Dates: start: 201911
  4. NAB?PACLITAXEL [Concomitant]
     Active Substance: PACLITAXEL
     Indication: BREAST CANCER METASTATIC
     Dosage: DAY 1, 8, 15, 28
     Route: 042
     Dates: start: 202002, end: 202008
  5. TECENTRIQ [Suspect]
     Active Substance: ATEZOLIZUMAB
     Indication: TRIPLE NEGATIVE BREAST CANCER
     Dosage: ON DAY 1, 15, 28
     Route: 042
     Dates: start: 20200227, end: 20201027

REACTIONS (1)
  - Intracranial tumour haemorrhage [Fatal]

NARRATIVE: CASE EVENT DATE: 20201029
